FAERS Safety Report 8080527-4 (Version None)
Quarter: 2012Q1

REPORT INFORMATION
  Report Type: 
  Country: None (occurrence: None)
  Receive Date: 20120130
  Receipt Date: 20120117
  Transmission Date: 20120608
  Serious: Yes (Hospitalization, Other)
  Sender: FDA-Public Use
  Company Number: DE-UCBSA-050119

PATIENT
  Age: 75 Year
  Sex: Female

DRUGS (13)
  1. LACOSAMIDE [Suspect]
     Dosage: DAILY DOSE: 300 MG
     Dates: end: 20110101
  2. CARBAMAZEPINE [Concomitant]
     Indication: CONVULSION
     Dosage: DAILY DOSE: 400 MG
     Dates: start: 20101101
  3. CARBAMAZEPINE [Concomitant]
     Dosage: DAILY DOSE: 600 MG
     Dates: start: 20080101
  4. LACOSAMIDE [Suspect]
     Indication: CONVULSION
     Dosage: DAILY DOSE: 200 MG
     Dates: start: 20081001
  5. LEVETIRACETAM [Suspect]
     Indication: CONVULSION
     Dosage: DAILY DOSE: 500 MG
     Dates: start: 20101101
  6. PRIMIDONE [Concomitant]
     Indication: CONVULSION
  7. TOPIRAMATE [Concomitant]
     Indication: CONVULSION
  8. CARBAMAZEPINE [Concomitant]
     Dosage: DAILY DOSE: 800 MG
     Dates: start: 20080101
  9. LEVETIRACETAM [Suspect]
     Dosage: DAILY DOSE: 1000 MG
  10. PHENYTOIN [Concomitant]
     Indication: CONVULSION
  11. GABAPENTIN [Concomitant]
     Indication: CONVULSION
  12. VALPROIC ACID [Concomitant]
     Indication: CONVULSION
  13. CARBAMAZEPINE [Concomitant]
     Dosage: DAILY DOSE: 200 MG

REACTIONS (2)
  - NO THERAPEUTIC RESPONSE [None]
  - CONVULSION [None]
